FAERS Safety Report 6852967-X (Version None)
Quarter: 2010Q3

REPORT INFORMATION
  Report Type: 
  Country: None (occurrence: None)
  Receive Date: 20100717
  Receipt Date: 20071128
  Transmission Date: 20110219
  Serious: No
  Sender: FDA-Public Use
  Company Number: US-PFIZER INC-2007102102

PATIENT
  Sex: Female
  Weight: 89.545 kg

DRUGS (6)
  1. CHANTIX [Suspect]
     Indication: SMOKING CESSATION THERAPY
     Dates: start: 20070101
  2. EFFEXOR XR [Concomitant]
  3. CLONAZEPAM [Concomitant]
  4. ALL OTHER THERAPEUTIC PRODUCTS [Concomitant]
  5. HEALTH OIL [Concomitant]
  6. TEA, GREEN [Concomitant]

REACTIONS (5)
  - CHEST PAIN [None]
  - DRY MOUTH [None]
  - HEADACHE [None]
  - NAUSEA [None]
  - PARANASAL SINUS HYPERSECRETION [None]
